FAERS Safety Report 8584600-3 (Version None)
Quarter: 2012Q3

REPORT INFORMATION
  Report Type: 
  Country: None (occurrence: None)
  Receive Date: 20120802
  Receipt Date: 20120802
  Transmission Date: 20120928
  Serious: Yes (Hospitalization)
  Sender: FDA-Public Use
  Company Number: None

PATIENT
  Sex: Female
  Weight: 57.3 kg

DRUGS (4)
  1. BEVACIZUMAB (RHUMAB VEGF) [Suspect]
  2. ELOXATIN [Suspect]
  3. FLUOROURACIL [Suspect]
     Dosage: 660 MG BY BOLUS INJECTION 3960 MG BY CONTIONOUS INFUSION OVER 48 HOURS
     Route: 040
  4. LEUCOVORIN CALCIUM [Suspect]

REACTIONS (1)
  - DIARRHOEA [None]
